FAERS Safety Report 10077159 (Version 1)
Quarter: 2014Q2

REPORT INFORMATION
  Report Type: Spontaneous
  Country: CA (occurrence: CA)
  Receive Date: 20140414
  Receipt Date: 20140414
  Transmission Date: 20141212
  Serious: Yes (Other)
  Sender: FDA-Public Use
  Company Number: PHHY2014CA043053

PATIENT
  Sex: 0

DRUGS (1)
  1. SOMATROPIN [Suspect]

REACTIONS (1)
  - Sleep apnoea syndrome [Unknown]
